FAERS Safety Report 4352787-4 (Version None)
Quarter: 2004Q2

REPORT INFORMATION
  Report Type: 
  Country: None (occurrence: None)
  Receive Date: 20040429
  Receipt Date: 20040416
  Transmission Date: 20050107
  Serious: Yes (Other)
  Sender: FDA-Public Use
  Company Number: 2004026328

PATIENT
  Age: 49 Year
  Sex: Male

DRUGS (3)
  1. GEODON [Suspect]
     Indication: SCHIZOPHRENIA
     Dosage: 240 MG (TID), ORAL
     Route: 048
     Dates: start: 20030601
  2. CLOZAPINE [Suspect]
     Indication: SCHIZOPHRENIA
     Dosage: 50 MG (BID), ORAL
     Route: 048
     Dates: start: 20040326
  3. CLONAZEPAM [Concomitant]

REACTIONS (1)
  - PLATELET COUNT DECREASED [None]
